FAERS Safety Report 18714068 (Version 1)
Quarter: 2021Q1

REPORT INFORMATION
  Report Type: Spontaneous
  Country: PL (occurrence: PL)
  Receive Date: 20210107
  Receipt Date: 20210107
  Transmission Date: 20210419
  Serious: Yes (Other)
  Sender: FDA-Public Use
  Company Number: PL-TAKEDA-2021TUS000710

PATIENT
  Sex: Male

DRUGS (7)
  1. ASAMAX [Concomitant]
     Active Substance: MESALAMINE
     Dosage: UNK
  2. ENTYVIO [Suspect]
     Active Substance: VEDOLIZUMAB
     Indication: COLITIS ULCERATIVE
     Dosage: UNK
     Route: 065
  3. LIPROLOG [Concomitant]
     Active Substance: INSULIN LISPRO
     Dosage: UNK
  4. EBIVOL [Concomitant]
     Dosage: 5 MILLIGRAM
  5. PRIMACOR [MILRINONE LACTATE] [Concomitant]
     Dosage: 20 MILLIGRAM
  6. NOLIPREL BI FORTE [Concomitant]
     Dosage: UNK
  7. GLUCOPHAGE [Concomitant]
     Active Substance: METFORMIN HYDROCHLORIDE
     Dosage: UNK

REACTIONS (1)
  - Diabetes mellitus [Unknown]
